FAERS Safety Report 12464847 (Version 1)
Quarter: 2016Q2

REPORT INFORMATION
  Report Type: Report from Study
  Country: BR (occurrence: BR)
  Receive Date: 20160614
  Receipt Date: 20160614
  Transmission Date: 20160815
  Serious: Yes (Other)
  Sender: FDA-Public Use
  Company Number: BR-BAYER-2016-110641

PATIENT
  Sex: Male
  Weight: 4.5 kg

DRUGS (1)
  1. BETAFERON [Suspect]
     Active Substance: INTERFERON BETA-1B
     Dosage: UNK UNK, UNK
     Route: 064

REACTIONS (2)
  - Glycogen storage disorder [None]
  - Foetal exposure timing unspecified [None]
